FAERS Safety Report 23448281 (Version 1)
Quarter: 2024Q1

REPORT INFORMATION
  Report Type: Spontaneous
  Country: US (occurrence: US)
  Receive Date: 20240127
  Receipt Date: 20240127
  Transmission Date: 20240410
  Serious: No
  Sender: FDA-Public Use
  Company Number: US-ABBVIE-5603320

PATIENT
  Age: 62 Year
  Sex: Female
  Weight: 61.234 kg

DRUGS (1)
  1. CYCLOSPORINE [Suspect]
     Active Substance: CYCLOSPORINE
     Indication: Dry eye
     Dosage: 01 DROP IN EACH EYE, TWICE A DAY/ 0.05% UNIT DOSE/?FORM STRENGTH: 0.05 PERCENT
     Route: 047
     Dates: start: 202401, end: 20240109

REACTIONS (5)
  - Eye irritation [Recovered/Resolved]
  - Throat irritation [Recovered/Resolved]
  - Nasal discomfort [Recovered/Resolved]
  - Eye irritation [Recovered/Resolved]
  - Hypersensitivity [Unknown]

NARRATIVE: CASE EVENT DATE: 20240101
